FAERS Safety Report 8994805 (Version 1)
Quarter: 2012Q4

REPORT INFORMATION
  Report Type: Spontaneous
  Country: US (occurrence: None)
  Receive Date: 20121221
  Receipt Date: 20121221
  Transmission Date: 20130627
  Serious: Yes (Death)
  Sender: FDA-Public Use
  Company Number: ALK-2012-001147

PATIENT
  Age: 64 Year
  Sex: Male

DRUGS (2)
  1. VIVITROL (VIVITROL_NDA) INJECTION, 380MG [Suspect]
     Indication: ALCOHOL DEPENDENCE SYNDROME
     Dosage: 380 mg, q4wk, Intramuscular
     Route: 030
     Dates: start: 20121018, end: 20121018
  2. TRAZODONE (TRAZODONE) [Concomitant]

REACTIONS (1)
  - Death [None]
